FAERS Safety Report 17907287 (Version 2)
Quarter: 2020Q3

REPORT INFORMATION
  Report Type: Spontaneous
  Country: CA (occurrence: CA)
  Receive Date: 20200617
  Receipt Date: 20200921
  Transmission Date: 20201103
  Serious: Yes (Life-Threatening)
  Sender: FDA-Public Use
  Company Number: CA-ADIENNEP-2020AD000340

PATIENT
  Age: 4 Year
  Sex: Female
  Weight: 16.4 kg

DRUGS (43)
  1. THIOTEPA. [Suspect]
     Active Substance: THIOTEPA
     Indication: ACUTE LYMPHOCYTIC LEUKAEMIA
     Dosage: 1 DOSAGE 80 MG EVERY 12 HOUR(S)
     Route: 042
     Dates: start: 20180223, end: 20180223
  2. BUSULFAN. [Suspect]
     Active Substance: BUSULFAN
     Indication: ACUTE LYMPHOCYTIC LEUKAEMIA
     Dosage: 77 MG
     Route: 042
     Dates: start: 20180224, end: 20180225
  3. CICLOSPORIN [Concomitant]
     Active Substance: CYCLOSPORINE
     Route: 048
     Dates: start: 20180301, end: 20180410
  4. LEVETIRACETAM. [Concomitant]
     Active Substance: LEVETIRACETAM
     Dosage: 2 DOSAGES 160 MG DAILY
     Route: 048
     Dates: start: 20180223, end: 20180228
  5. TOBRAMYCIN. [Concomitant]
     Active Substance: TOBRAMYCIN
     Dosage: 130 MG EVERY 24 HOUR(S)
     Route: 042
     Dates: start: 20180308, end: 20180315
  6. PARACETAMOL [Concomitant]
     Active Substance: ACETAMINOPHEN
     Dosage: 160 MG EVERY 4 HOUR(S)
     Route: 048
     Dates: start: 20180221, end: 20180405
  7. URSODEOXYCHOLIC ACID [Concomitant]
     Active Substance: URSODIOL
     Dosage: 2 DOSAGES 120 MG DAILY
     Route: 048
     Dates: start: 20180221, end: 20180327
  8. HEPARIN [Concomitant]
     Active Substance: HEPARIN SODIUM
     Dosage: 15 IU DAILY
     Route: 042
     Dates: start: 20180323, end: 20180405
  9. MAGNESIUM [Concomitant]
     Active Substance: MAGNESIUM
     Dates: start: 20180301, end: 20180410
  10. RANITIDINE. [Concomitant]
     Active Substance: RANITIDINE
     Dosage: 15 MG EVERY 8 HOUR(S)
     Route: 042
     Dates: start: 20180221, end: 20180322
  11. EPINEPHRINE. [Concomitant]
     Active Substance: EPINEPHRINE
     Dosage: .2 MG
     Route: 030
     Dates: start: 20180330, end: 20180405
  12. FAMCICLOVIR. [Concomitant]
     Active Substance: FAMCICLOVIR
     Dosage: 2 DOSAGES 125 MG DAILY
     Route: 048
     Dates: start: 20180327, end: 20180328
  13. METOCLOPRAMIDE. [Concomitant]
     Active Substance: METOCLOPRAMIDE
     Dosage: 4 MG EVERY 6 HOUR(S)
     Route: 042
     Dates: start: 20180221, end: 20180224
  14. VANCOMYCIN [Concomitant]
     Active Substance: VANCOMYCIN
     Dosage: 240 MG EVERY 6 HOUR(S)
     Route: 042
     Dates: start: 20180308, end: 20180321
  15. BUSULFAN. [Suspect]
     Active Substance: BUSULFAN
     Indication: ACUTE LYMPHOCYTIC LEUKAEMIA
     Dosage: 90 MG
     Route: 042
     Dates: start: 20180225, end: 20180226
  16. BUSULFAN. [Suspect]
     Active Substance: BUSULFAN
     Indication: ACUTE LYMPHOCYTIC LEUKAEMIA
     Dosage: 70 MG
     Route: 042
     Dates: start: 20180226, end: 20180227
  17. RITUXAN [Suspect]
     Active Substance: RITUXIMAB
     Indication: ACUTE LYMPHOCYTIC LEUKAEMIA
     Dosage: 255 MG
     Route: 042
     Dates: start: 20180405, end: 20180405
  18. FLUDARABINE [Suspect]
     Active Substance: FLUDARABINE PHOSPHATE
     Indication: ACUTE LYMPHOCYTIC LEUKAEMIA
     Dosage: 20 MG
     Route: 042
     Dates: start: 20180222, end: 20180226
  19. CLOTRIMAZOLE. [Concomitant]
     Active Substance: CLOTRIMAZOLE
     Route: 061
     Dates: start: 20180309
  20. DIMENHYDRINATE. [Concomitant]
     Active Substance: DIMENHYDRINATE
     Dosage: 4 DOSAGES 15 MG DAILY
     Route: 042
     Dates: start: 20180221, end: 20180410
  21. LORAZEPAM. [Concomitant]
     Active Substance: LORAZEPAM
     Dosage: 1.6 MG
     Route: 042
     Dates: start: 20180221, end: 20180228
  22. MORPHINE [Concomitant]
     Active Substance: MORPHINE
     Dosage: 1.6 MG EVERY 3 HOUR(S)
     Route: 042
     Dates: start: 20180221, end: 20180221
  23. NIFEDIPINE. [Concomitant]
     Active Substance: NIFEDIPINE
     Dosage: 1.6 MG EVERY 2 HOUR(S)
     Route: 048
     Dates: start: 20180221
  24. ONDANSETRON [Concomitant]
     Active Substance: ONDANSETRON
     Dosage: 3 MG EVERY 8 HOUR(S)
     Dates: start: 20180222, end: 20180410
  25. CALCIUM CARBONATE. [Concomitant]
     Active Substance: CALCIUM CARBONATE
     Route: 048
     Dates: start: 20180228, end: 20180410
  26. COLECALCIFEROL [Concomitant]
     Active Substance: CHOLECALCIFEROL
     Route: 048
     Dates: start: 20180228, end: 20180410
  27. AMLODIPINE [Concomitant]
     Active Substance: AMLODIPINE BESYLATE
     Dosage: 2 DOSAGES .8 MG DAILY
     Route: 048
     Dates: start: 20180221
  28. METHOTREXATE. [Suspect]
     Active Substance: METHOTREXATE
     Indication: ACUTE LYMPHOCYTIC LEUKAEMIA
     Dosage: 3.4 MG
     Route: 042
     Dates: start: 20180302, end: 20180312
  29. CEFTAZIDIME. [Concomitant]
     Active Substance: CEFTAZIDIME
     Dosage: 800 MG EVERY 8 HOUR(S)
     Route: 042
     Dates: start: 20180221, end: 20180309
  30. FLUCONAZOLE. [Concomitant]
     Active Substance: FLUCONAZOLE
     Dosage: 80 MG EVERY 24 HOUR(S)
     Route: 042
     Dates: start: 20180226, end: 20180321
  31. PREDNISONE. [Concomitant]
     Active Substance: PREDNISONE
     Route: 048
     Dates: start: 20180402, end: 20180409
  32. BUSULFAN. [Suspect]
     Active Substance: BUSULFAN
     Indication: ACUTE LYMPHOCYTIC LEUKAEMIA
     Dosage: 77 MG
     Route: 042
     Dates: start: 20180227, end: 20180227
  33. TRANEXAMIC ACID. [Concomitant]
     Active Substance: TRANEXAMIC ACID
     Route: 045
     Dates: start: 20180308, end: 20180308
  34. BETAMETHASONE. [Concomitant]
     Active Substance: BETAMETHASONE
     Route: 061
     Dates: start: 20180330
  35. CICLOSPORIN [Concomitant]
     Active Substance: CYCLOSPORINE
     Dosage: 40 MG EVERY 12 HOUR(S)
     Route: 042
     Dates: start: 20180226, end: 20180320
  36. RITUXAN [Suspect]
     Active Substance: RITUXIMAB
     Indication: ACUTE LYMPHOCYTIC LEUKAEMIA
     Dosage: 250 MG
     Route: 042
     Dates: start: 20180330, end: 20180330
  37. CHLORHEXIDINE [Concomitant]
     Active Substance: CHLORHEXIDINE
     Dosage: 2 DOSAGES 5 ML DAILY
     Route: 050
     Dates: start: 20180221
  38. DIPHENHYDRAMINE. [Concomitant]
     Active Substance: DIPHENHYDRAMINE
     Dosage: EVERY 6 HOUR(S)
     Route: 042
     Dates: start: 20180224, end: 20180405
  39. DEXAMETHASONE. [Concomitant]
     Active Substance: DEXAMETHASONE
     Dosage: 2.5 MG EVERY 24 HOUR(S)
     Route: 042
     Dates: start: 20180224, end: 20180226
  40. FUROSEMIDE. [Concomitant]
     Active Substance: FUROSEMIDE
     Dosage: 2.5 MG
     Route: 042
     Dates: start: 20180221, end: 20180221
  41. PIPERACILLIN. [Concomitant]
     Active Substance: PIPERACILLIN SODIUM
     Dosage: EVERY 6 HOUR(S)
     Route: 042
     Dates: start: 20180308, end: 20180405
  42. TAZOBACTAM [Concomitant]
     Active Substance: TAZOBACTAM
     Dosage: EVERY 6 HOUR(S)
     Route: 042
     Dates: start: 20180308, end: 20180405
  43. ALTEPLASE. [Concomitant]
     Active Substance: ALTEPLASE
     Dosage: 1 MG
     Route: 042
     Dates: start: 20180225, end: 20180325

REACTIONS (3)
  - Aplastic anaemia [Unknown]
  - Bacteraemia [Unknown]
  - Epstein-Barr virus infection [Unknown]

NARRATIVE: CASE EVENT DATE: 20180310
